FAERS Safety Report 20316321 (Version 4)
Quarter: 2022Q1

REPORT INFORMATION
  Report Type: Spontaneous
  Country: ES (occurrence: ES)
  Receive Date: 20220110
  Receipt Date: 20220211
  Transmission Date: 20220423
  Serious: Yes (Death, Hospitalization, Other)
  Sender: FDA-Public Use
  Company Number: ES-CELLTRION INC.-2022ES000109

PATIENT

DRUGS (8)
  1. INFLIXIMAB [Suspect]
     Active Substance: INFLIXIMAB
     Indication: Immune-mediated myocarditis
     Dosage: 5 MG/KG, SINGLE
     Route: 065
  2. PEMBROLIZUMAB [Suspect]
     Active Substance: PEMBROLIZUMAB
     Indication: Metastases to bone
     Dosage: UNK
  3. PEMBROLIZUMAB [Suspect]
     Active Substance: PEMBROLIZUMAB
     Indication: Thymoma
     Dosage: 2 MG/KG, EVERY 3 WEEKS
     Route: 065
     Dates: start: 202010
  4. PEMBROLIZUMAB [Suspect]
     Active Substance: PEMBROLIZUMAB
     Indication: Metastases to lung
     Dosage: UNK
  5. PEMBROLIZUMAB [Suspect]
     Active Substance: PEMBROLIZUMAB
     Indication: Metastases to pleura
     Dosage: UNK
  6. METHYLPREDNISOLONE [Concomitant]
     Active Substance: METHYLPREDNISOLONE
     Indication: Immune-mediated myocarditis
     Dosage: 2 MG/KG
     Route: 065
  7. METHYLPREDNISOLONE [Concomitant]
     Active Substance: METHYLPREDNISOLONE
     Dosage: 1 G, EVERY 1 DAY
     Route: 042
  8. ISOPROTERENOL [Concomitant]
     Active Substance: ISOPROTERENOL
     Indication: Immune-mediated myocarditis
     Dosage: UNKNOWN
     Route: 041

REACTIONS (9)
  - Acute kidney injury [Fatal]
  - Cardiogenic shock [Fatal]
  - Immune-mediated myocarditis [Fatal]
  - Condition aggravated [Fatal]
  - Respiratory failure [Fatal]
  - Cardiac failure congestive [Fatal]
  - Hypotension [Fatal]
  - Off label use [Fatal]
  - Myasthenia gravis [Unknown]
